FAERS Safety Report 4666963-4 (Version None)
Quarter: 2005Q2

REPORT INFORMATION
  Report Type: 
  Country: None (occurrence: None)
  Receive Date: 20050518
  Receipt Date: 20040810
  Transmission Date: 20051028
  Serious: Yes (Hospitalization, Other)
  Sender: FDA-Public Use
  Company Number: 2004228914US

PATIENT
  Sex: Female

DRUGS (4)
  1. PROVERA [Suspect]
  2. PREMARIN [Suspect]
  3. PREMPRO [Suspect]
  4. ESTROGENS [Suspect]

REACTIONS (1)
  - THROMBOSIS [None]
